FAERS Safety Report 23436061 (Version 2)
Quarter: 2024Q1

REPORT INFORMATION
  Report Type: Spontaneous
  Country: US (occurrence: None)
  Receive Date: 20240124
  Receipt Date: 20240325
  Transmission Date: 20240409
  Serious: No
  Sender: FDA-Public Use
  Company Number: 2024A017730

PATIENT
  Sex: Female

DRUGS (1)
  1. TEZEPELUMAB-EKKO [Suspect]
     Active Substance: TEZEPELUMAB-EKKO

REACTIONS (3)
  - Bronchitis [Unknown]
  - Influenza [Unknown]
  - Inappropriate schedule of product administration [Unknown]
